FAERS Safety Report 12513922 (Version 1)
Quarter: 2016Q2

REPORT INFORMATION
  Report Type: Spontaneous
  Country: US (occurrence: US)
  Receive Date: 20160627
  Receipt Date: 20160627
  Transmission Date: 20160815
  Serious: Yes (Other)
  Sender: FDA-Public Use
  Company Number: US-TURING PHARMACEUTICALS-2016TNG00025

PATIENT
  Sex: Female

DRUGS (3)
  1. DARAPRIM [Suspect]
     Active Substance: PYRIMETHAMINE
     Dosage: UNK
     Dates: end: 2016
  2. SULFADIAZINE. [Concomitant]
     Active Substance: SULFADIAZINE
  3. DARAPRIM [Suspect]
     Active Substance: PYRIMETHAMINE
     Dosage: UNK
     Dates: start: 2016

REACTIONS (3)
  - Seizure [Recovered/Resolved]
  - Neutropenia [Recovered/Resolved]
  - Product formulation issue [None]

NARRATIVE: CASE EVENT DATE: 2016
